FAERS Safety Report 21342970 (Version 1)
Quarter: 2022Q3

REPORT INFORMATION
  Report Type: Spontaneous
  Country: AT (occurrence: AT)
  Receive Date: 20220916
  Receipt Date: 20220916
  Transmission Date: 20221027
  Serious: Yes (Hospitalization)
  Sender: FDA-Public Use
  Company Number: AT-JNJFOC-20220926068

PATIENT
  Age: 63 Year
  Sex: Female

DRUGS (4)
  1. REMICADE [Suspect]
     Active Substance: INFLIXIMAB
     Indication: Colitis ulcerative
     Route: 041
     Dates: start: 2018
  2. STELARA [Suspect]
     Active Substance: USTEKINUMAB
     Indication: Colitis ulcerative
     Route: 040
     Dates: start: 202105
  3. STELARA [Suspect]
     Active Substance: USTEKINUMAB
     Dosage: 390MG, SUBSEQUENTLY 90MG Q4WEEK
     Route: 040
  4. PREDNISOLONE [Suspect]
     Active Substance: PREDNISOLONE
     Indication: Colitis ulcerative
     Dosage: SUBSEQUENTLY 1MG/KG
     Route: 042
     Dates: start: 202105

REACTIONS (5)
  - Haematochezia [Unknown]
  - General physical health deterioration [Unknown]
  - Tachycardia [Unknown]
  - Abdominal pain [Unknown]
  - Off label use [Unknown]
